FAERS Safety Report 5942026-2 (Version None)
Quarter: 2008Q4

REPORT INFORMATION
  Report Type: 
  Country: None (occurrence: None)
  Receive Date: 20081031
  Receipt Date: 20081023
  Transmission Date: 20090506
  Serious: Yes (Other)
  Sender: FDA-Public Use
  Company Number: 08H-163-0315111-00

PATIENT
  Age: 66 Year
  Sex: Male

DRUGS (4)
  1. STERILE WATER FOR IRRIGATION (STERILE WATER) (STERILE WATER) [Suspect]
     Indication: THERAPEUTIC PROCEDURE
  2. PROPOFOL [Concomitant]
  3. FENTANYL-100 [Concomitant]
  4. 70% NITROUS + 30% OXYGEN (NITROUS OXIDE) [Concomitant]

REACTIONS (8)
  - BLOOD PRESSURE INCREASED [None]
  - CONFUSIONAL STATE [None]
  - DEPRESSED LEVEL OF CONSCIOUSNESS [None]
  - ELECTROCARDIOGRAM ST SEGMENT ELEVATION [None]
  - HAEMOLYSIS [None]
  - HEART RATE DECREASED [None]
  - RENAL FAILURE ACUTE [None]
  - TRANSURETHRAL RESECTION SYNDROME [None]
